FAERS Safety Report 9438710 (Version 3)
Quarter: 2013Q3

REPORT INFORMATION
  Report Type: Spontaneous
  Country: DO (occurrence: DO)
  Receive Date: 20130802
  Receipt Date: 20130916
  Transmission Date: 20140515
  Serious: Yes (Other)
  Sender: FDA-Public Use
  Company Number: PHHY2013DO082290

PATIENT
  Age: 70 Year
  Sex: Female
  Weight: 68 kg

DRUGS (6)
  1. ACLASTA [Suspect]
     Indication: OSTEOPOROSIS
     Dosage: 5 MG, ONCE A YEAR
     Route: 042
     Dates: start: 201112
  2. ACLASTA [Suspect]
     Dosage: 5 MG, ONCE A YEAR
     Route: 042
     Dates: start: 201301
  3. NEUFIL [Concomitant]
     Dosage: UNK UKN, QD
  4. MERISLON [Concomitant]
     Dosage: 20 MG, QD
  5. ANGIBLOC [Concomitant]
     Dosage: 50 MG, QD
  6. CLOPIDOGREL [Concomitant]
     Dosage: UNK UKN, QD

REACTIONS (2)
  - Femur fracture [Recovered/Resolved with Sequelae]
  - Pain in extremity [Recovered/Resolved with Sequelae]
